FAERS Safety Report 5092863-4 (Version None)
Quarter: 2006Q3

REPORT INFORMATION
  Report Type: 
  Country: None (occurrence: None)
  Receive Date: 20060828
  Receipt Date: 20060821
  Transmission Date: 20061208
  Serious: Yes (Hospitalization, Other)
  Sender: FDA-Public Use
  Company Number: GBWYE757122AUG06

PATIENT
  Age: 20 Month
  Sex: Male

DRUGS (5)
  1. IBUPROFEN [Suspect]
     Indication: PAIN
     Dosage: 50MG, ORAL
     Route: 048
     Dates: start: 20060727, end: 20060730
  2. IBUPROFEN [Suspect]
     Indication: PAIN
     Dosage: 50MG, ORAL
     Route: 048
     Dates: start: 20060727, end: 20060730
  3. BENZYLPENICILLIN (BENZYLPENICILLIN) [Concomitant]
  4. FLOXACILLIN SODIUM [Concomitant]
  5. ACETAMINOPHEN [Concomitant]

REACTIONS (1)
  - ACUTE PRERENAL FAILURE [None]
